FAERS Safety Report 4958630-4 (Version None)
Quarter: 2006Q1

REPORT INFORMATION
  Report Type: 
  Country: None (occurrence: None)
  Receive Date: 20060330
  Receipt Date: 20050414
  Transmission Date: 20060701
  Serious: Yes (Other)
  Sender: FDA-Public Use
  Company Number: US-MERCK-0504USA02853

PATIENT
  Age: 74 Year
  Sex: Female
  Weight: 68 kg

DRUGS (12)
  1. VIOXX [Suspect]
     Indication: OSTEOPOROSIS
     Route: 048
     Dates: start: 20011230, end: 20040712
  2. FAMOTIDINE [Concomitant]
     Route: 065
  3. LANOXIN [Concomitant]
     Route: 065
  4. WARFARIN [Concomitant]
     Route: 065
  5. DOCUSATE SODIUM [Concomitant]
     Route: 065
  6. PROMETH VC PLAIN [Concomitant]
     Route: 065
  7. AMOXICILLIN [Concomitant]
     Route: 065
  8. VASOTEC RPD [Concomitant]
     Route: 065
  9. HYDRODIURIL [Concomitant]
     Route: 065
  10. PRINIVIL [Concomitant]
     Route: 065
  11. FUROSEMIDE [Concomitant]
     Route: 065
  12. CIMETIDINE [Concomitant]
     Route: 065

REACTIONS (3)
  - CARDIAC FAILURE CONGESTIVE [None]
  - MYOCARDIAL INFARCTION [None]
  - OVERDOSE [None]
